FAERS Safety Report 9180842 (Version 1)
Quarter: 2013Q1

REPORT INFORMATION
  Report Type: Spontaneous
  Country: US (occurrence: None)
  Receive Date: 20130320
  Receipt Date: 20130320
  Transmission Date: 20140127
  Serious: Yes (Other)
  Sender: FDA-Public Use
  Company Number: AUR-APL-2013-02377

PATIENT
  Sex: Female

DRUGS (8)
  1. CEFALEXIN [Suspect]
  2. LYRICA [Suspect]
  3. PREDNISONE [Suspect]
  4. TRAMADOL HCL [Suspect]
  5. TRAMADOL HCL [Suspect]
  6. DICLOFENAC (DICLOFENAC) [Suspect]
     Route: 048
     Dates: start: 20130131, end: 20130131
  7. ARAVA [Suspect]
  8. TRAMADOL AND ACETAMINOPHEN [Suspect]

REACTIONS (4)
  - Erythema [None]
  - Skin exfoliation [None]
  - Local swelling [None]
  - Drug interaction [None]
